FAERS Safety Report 11186816 (Version 2)
Quarter: 2016Q1

REPORT INFORMATION
  Report Type: Spontaneous
  Country: US (occurrence: US)
  Receive Date: 20150614
  Receipt Date: 20160331
  Transmission Date: 20160525
  Serious: Yes (Other)
  Sender: FDA-Public Use
  Company Number: US-SA-2015SA081711

PATIENT
  Age: 57 Year
  Sex: Male
  Weight: 111.58 kg

DRUGS (1)
  1. AMBIEN [Suspect]
     Active Substance: ZOLPIDEM TARTRATE
     Indication: INSOMNIA
     Dosage: 10 MG Q HS PRN (EVERY NIGHT WHEN NEEDED)
     Route: 065
     Dates: start: 20100111, end: 20150202

REACTIONS (2)
  - Amnesia [Recovered/Resolved]
  - Road traffic accident [Unknown]

NARRATIVE: CASE EVENT DATE: 20150102
